FAERS Safety Report 16191878 (Version 1)
Quarter: 2019Q2

REPORT INFORMATION
  Report Type: Spontaneous
  Country: US (occurrence: US)
  Receive Date: 20190412
  Receipt Date: 20190412
  Transmission Date: 20190711
  Serious: Yes (Life-Threatening, Hospitalization, Other)
  Sender: FDA-Public Use
  Company Number: US-SUNOVION-2019SUN001502

PATIENT
  Age: 19 Year
  Sex: Male

DRUGS (4)
  1. LATUDA [Suspect]
     Active Substance: LURASIDONE HYDROCHLORIDE
     Dosage: UNK
     Route: 048
  2. VORTIOXETINE. [Concomitant]
     Active Substance: VORTIOXETINE
  3. BUPROPION. [Suspect]
     Active Substance: BUPROPION
  4. LITHIUM. [Concomitant]
     Active Substance: LITHIUM

REACTIONS (10)
  - Respiratory failure [Unknown]
  - Electrocardiogram QT prolonged [Unknown]
  - Product residue present [Unknown]
  - Cardiac arrest [Unknown]
  - Hypotension [Unknown]
  - Tachycardia [Unknown]
  - Delirium [Unknown]
  - Intentional overdose [Unknown]
  - Electrocardiogram QRS complex prolonged [Unknown]
  - Status epilepticus [Unknown]
